FAERS Safety Report 7298256-3 (Version None)
Quarter: 2011Q1

REPORT INFORMATION
  Report Type: 
  Country: None (occurrence: None)
  Receive Date: 20110217
  Receipt Date: 20100226
  Transmission Date: 20110831
  Serious: No
  Sender: FDA-Public Use
  Company Number: US-PFIZER INC-2010026437

PATIENT
  Sex: Female
  Weight: 68 kg

DRUGS (2)
  1. XALATAN [Suspect]
     Indication: GLAUCOMA
     Dosage: UNK
     Dates: start: 20090101
  2. ATIVAN [Concomitant]
     Dosage: UNK

REACTIONS (1)
  - SKIN DISCOLOURATION [None]
